FAERS Safety Report 4896734-5 (Version None)
Quarter: 2005Q4

REPORT INFORMATION
  Report Type: 
  Country: None (occurrence: None)
  Receive Date: 20051228
  Receipt Date: 20051017
  Transmission Date: 20060501
  Serious: Yes (Death, Other)
  Sender: FDA-Public Use
  Company Number: USA0510111053

PATIENT
  Age: 68 Year
  Sex: Female

DRUGS (1)
  1. HUMULIN 70/30 [Suspect]
     Dosage: 35 U/2 DAY
     Dates: start: 19870101, end: 20050801

REACTIONS (3)
  - EATING DISORDER [None]
  - GASTRIC CANCER [None]
  - MASS [None]
